FAERS Safety Report 6263085-6 (Version None)
Quarter: 2009Q3

REPORT INFORMATION
  Report Type: 
  Country: None (occurrence: None)
  Receive Date: 20090710
  Receipt Date: 20090701
  Transmission Date: 20100115
  Serious: Yes (Hospitalization, Other)
  Sender: FDA-Public Use
  Company Number: JP-PFIZER INC-2009236368

PATIENT
  Age: 39 Year

DRUGS (2)
  1. SOLU-MEDROL [Suspect]
     Dosage: 1 G, UNK
     Route: 042
     Dates: start: 20060901
  2. NEUROTROPIN [Concomitant]
     Dates: start: 20060901

REACTIONS (1)
  - LIVER DISORDER [None]
